FAERS Safety Report 13030771 (Version 1)
Quarter: 2016Q4

REPORT INFORMATION
  Report Type: Spontaneous
  Country: US (occurrence: US)
  Receive Date: 20161215
  Receipt Date: 20161215
  Transmission Date: 20170207
  Serious: Yes (Hospitalization, Other)
  Sender: FDA-Public Use
  Company Number: US-BION-005773

PATIENT
  Age: 36 Year
  Sex: Female

DRUGS (1)
  1. IBUPROFEN UNKNOWN PRODUCT [Suspect]
     Active Substance: IBUPROFEN
     Indication: HEADACHE
     Dosage: TAKING 4 TIMES DAILY FOR THE PREVIOUS 20 DAYS.BEFORE THAT TAKING OCCASIONALLY.

REACTIONS (3)
  - Hypersensitivity [Recovered/Resolved]
  - Gastrointestinal toxicity [Unknown]
  - Drug-induced liver injury [Recovered/Resolved]
